FAERS Safety Report 11438935 (Version 1)
Quarter: 2015Q3

REPORT INFORMATION
  Report Type: Spontaneous
  Country: US (occurrence: US)
  Receive Date: 20150901
  Receipt Date: 20150901
  Transmission Date: 20151125
  Serious: No
  Sender: FDA-Public Use
  Company Number: US-JNJFOC-20150813472

PATIENT
  Age: 25 Year
  Sex: Female
  Weight: 63.5 kg

DRUGS (1)
  1. REMICADE [Suspect]
     Active Substance: INFLIXIMAB
     Indication: CROHN^S DISEASE
     Route: 042
     Dates: start: 201407, end: 201508

REACTIONS (9)
  - Eating disorder [Unknown]
  - Dysstasia [Unknown]
  - Abdominal pain upper [Unknown]
  - Pain [Unknown]
  - Therapeutic response decreased [Unknown]
  - Malaise [Unknown]
  - Vomiting [Unknown]
  - Faecal incontinence [Unknown]
  - Dyspepsia [Unknown]

NARRATIVE: CASE EVENT DATE: 201501
